FAERS Safety Report 25460540 (Version 1)
Quarter: 2025Q2

REPORT INFORMATION
  Report Type: Spontaneous
  Country: GB (occurrence: GB)
  Receive Date: 20250620
  Receipt Date: 20250620
  Transmission Date: 20250717
  Serious: No
  Sender: TEVA
  Company Number: GB-AUROBINDO-AUR-APL-2025-017282

PATIENT
  Age: 50 Year
  Sex: Female
  Weight: 93 kg

DRUGS (4)
  1. SOLIFENACIN [Suspect]
     Active Substance: SOLIFENACIN
     Indication: Hypertonic bladder
     Dosage: 10 MILLIGRAM, ONCE A DAY (DAILY DOSE: 10MG OD), SOLIFENACIN FILM COATED TABLET 10MG
     Route: 048
     Dates: start: 202412, end: 202501
  2. SOLIFENACIN [Suspect]
     Active Substance: SOLIFENACIN
     Indication: Hypertonic bladder
     Dosage: 10 MILLIGRAM, ONCE A DAY (DAILY DOSE: 10MG OD)
     Route: 048
     Dates: start: 202501, end: 202503
  3. MIRABEGRON [Concomitant]
     Active Substance: MIRABEGRON
     Indication: Hypertonic bladder
     Dosage: 50 MILLIGRAM, ONCE A DAY
     Route: 048
  4. THYROXINE [Concomitant]
     Active Substance: LEVOTHYROXINE
     Indication: Thyroid disorder
     Dosage: 25 MICROGRAM, ONCE A DAY
     Route: 048

REACTIONS (3)
  - Thirst decreased [Recovered/Resolved]
  - Product substitution issue [Recovered/Resolved]
  - Drug ineffective [Recovered/Resolved]

NARRATIVE: CASE EVENT DATE: 20241201
